FAERS Safety Report 10955427 (Version 1)
Quarter: 2015Q1

REPORT INFORMATION
  Report Type: Spontaneous
  Country: FR (occurrence: FR)
  Receive Date: 20150326
  Receipt Date: 20150326
  Transmission Date: 20150721
  Serious: Yes (Hospitalization)
  Sender: FDA-Public Use
  Company Number: FR-009507513-1503FRA008636

PATIENT
  Age: 54 Year
  Sex: Male

DRUGS (8)
  1. EFFEXOR LP [Suspect]
     Active Substance: VENLAFAXINE HYDROCHLORIDE
     Dosage: UNK
     Route: 048
  2. ATENOLOL. [Suspect]
     Active Substance: ATENOLOL
     Dosage: UNK
     Route: 048
  3. ZANEXTRA [Concomitant]
     Active Substance: ENALAPRIL MALEATE\LERCANIDIPINE HYDROCHLORIDE
     Dosage: UNK
     Route: 048
  4. ATENOLOL. [Suspect]
     Active Substance: ATENOLOL
     Dosage: ON 08-FEB-2015, QUANTITY SUPPOSSED TO BE INGESTED 1 G(20 TABLETS)
     Route: 048
     Dates: start: 20150208
  5. ZANEXTRA [Concomitant]
     Active Substance: ENALAPRIL MALEATE\LERCANIDIPINE HYDROCHLORIDE
     Dosage: 10 TABLETS ON 08-FEB-2015
     Route: 048
     Dates: start: 20150208
  6. INEGY [Suspect]
     Active Substance: EZETIMIBE\SIMVASTATIN
     Dosage: UNK
     Route: 048
  7. INEGY [Suspect]
     Active Substance: EZETIMIBE\SIMVASTATIN
     Dosage: 10 DF, ONCE
     Dates: start: 20150208
  8. EFFEXOR LP [Suspect]
     Active Substance: VENLAFAXINE HYDROCHLORIDE
     Dosage: ON 08-FEB-2015 QUANTITY INGESTED IS 10 TABLETS
     Route: 048
     Dates: start: 20150208

REACTIONS (1)
  - Hypotension [Recovered/Resolved]

NARRATIVE: CASE EVENT DATE: 20150208
